FAERS Safety Report 7781798-1 (Version None)
Quarter: 2011Q3

REPORT INFORMATION
  Report Type: 
  Country: None (occurrence: None)
  Receive Date: 20110927
  Receipt Date: 20110920
  Transmission Date: 20111222
  Serious: Yes (Life-Threatening)
  Sender: FDA-Public Use
  Company Number: GB-GLAXOSMITHKLINE-B0748570A

PATIENT
  Age: 44 Year
  Sex: Male

DRUGS (1)
  1. PAROXETINE [Suspect]
     Indication: PRODUCT USED FOR UNKNOWN INDICATION
     Route: 065

REACTIONS (10)
  - WITHDRAWAL SYNDROME [None]
  - DEPRESSION [None]
  - GAIT DISTURBANCE [None]
  - EYE DISORDER [None]
  - TREMOR [None]
  - PAIN IN EXTREMITY [None]
  - ANXIETY [None]
  - EYE PAIN [None]
  - NECK PAIN [None]
  - PANIC ATTACK [None]
